FAERS Safety Report 5999477-X (Version None)
Quarter: 2008Q4

REPORT INFORMATION
  Report Type: 
  Country: None (occurrence: None)
  Receive Date: 20081211
  Receipt Date: 20081211
  Transmission Date: 20090506
  Serious: No
  Sender: FDA-Public Use
  Company Number: None

PATIENT
  Sex: Female

DRUGS (1)
  1. MINOXIDIL [Suspect]
     Indication: BLOOD PRESSURE
     Dosage: 2.5 MG
     Dates: start: 20080820, end: 20080920

REACTIONS (1)
  - HYPERTRICHOSIS [None]
